FAERS Safety Report 9422544 (Version 1)
Quarter: 2013Q3

REPORT INFORMATION
  Report Type: Spontaneous
  Country: US (occurrence: US)
  Receive Date: 20130726
  Receipt Date: 20130726
  Transmission Date: 20140515
  Serious: Yes (Other)
  Sender: FDA-Public Use
  Company Number: US-PFIZER INC-2013215622

PATIENT
  Age: 72 Year
  Sex: Male

DRUGS (8)
  1. SUTENT [Suspect]
     Indication: METASTATIC RENAL CELL CARCINOMA
     Dosage: UNK
  2. ENABLEX [Concomitant]
     Dosage: 7.5 MG, 1X/DAY (DAILY)
  3. ACIDOPHILUS [Concomitant]
     Dosage: 175 MG, 1X/DAY (DAILY)
  4. ACETYLSALICYLIC ACID [Concomitant]
     Dosage: 81 MG, EVERY 3 DAYS
  5. TERAZOSIN [Concomitant]
     Dosage: 4 MG, IN THE EVENING
  6. CALCIUM WITH VITAMIN D [Concomitant]
     Dosage: 1 DF, 2X/DAY
  7. PERCOCET [Concomitant]
     Dosage: 1 TO 2 TABLETS EVERY 4 HOURS, AS NEEDED
  8. LISINOPRIL [Concomitant]
     Dosage: UNK

REACTIONS (4)
  - Pneumonia [Recovering/Resolving]
  - Disease progression [Not Recovered/Not Resolved]
  - Metastatic renal cell carcinoma [Not Recovered/Not Resolved]
  - Malaise [Recovering/Resolving]
